FAERS Safety Report 5492189-0 (Version None)
Quarter: 2007Q4

REPORT INFORMATION
  Report Type: 
  Country: None (occurrence: None)
  Receive Date: 20071015
  Receipt Date: 20060912
  Transmission Date: 20080405
  Serious: Yes (Hospitalization)
  Sender: FDA-Public Use
  Company Number: 2006-13325

PATIENT

DRUGS (2)
  1. ULTRACET [Suspect]
  2. KEPPRA [Suspect]

REACTIONS (1)
  - WRONG DRUG ADMINISTERED [None]
